FAERS Safety Report 20253850 (Version 1)
Quarter: 2021Q4

REPORT INFORMATION
  Report Type: Spontaneous
  Country: US (occurrence: US)
  Receive Date: 20211230
  Receipt Date: 20211230
  Transmission Date: 20220303
  Serious: No
  Sender: FDA-Public Use
  Company Number: US-COOPERSURGICAL, INC.-US-2021CPS003421

PATIENT
  Age: 30 Year
  Sex: Female
  Weight: 78.912 kg

DRUGS (4)
  1. PARAGARD T 380A [Suspect]
     Active Substance: COPPER
     Indication: Contraception
     Dosage: UNK
     Route: 015
     Dates: start: 20211019, end: 20211104
  2. LEVOXYL [Concomitant]
     Active Substance: LEVOTHYROXINE SODIUM
     Indication: Hypothyroidism
     Dosage: 25 MICROGRAM
     Route: 065
  3. IRON [Concomitant]
     Active Substance: IRON
     Indication: Blood iron decreased
     Route: 065
  4. VITAMIN C [Concomitant]
     Active Substance: ASCORBIC ACID
     Indication: Supplementation therapy
     Route: 065

REACTIONS (2)
  - Device expulsion [Recovered/Resolved]
  - Abnormal uterine bleeding [Unknown]

NARRATIVE: CASE EVENT DATE: 20211101
